FAERS Safety Report 22678619 (Version 5)
Quarter: 2024Q4

REPORT INFORMATION
  Report Type: Spontaneous
  Country: US (occurrence: US)
  Receive Date: 20230706
  Receipt Date: 20241125
  Transmission Date: 20250115
  Serious: No
  Sender: PFIZER
  Company Number: US-PFIZER INC-202300237332

PATIENT
  Age: 5 Year
  Sex: Female
  Weight: 14.9 kg

DRUGS (3)
  1. OXBRYTA [Suspect]
     Active Substance: VOXELOTOR
     Dosage: [300 MG., 2 TABLETS FOR ORAL SUSPENSION, ONCE DAILY]
     Route: 048
     Dates: start: 202301, end: 202302
  2. OXBRYTA [Suspect]
     Active Substance: VOXELOTOR
     Dosage: 600 MG, 1X/DAY
     Route: 048
     Dates: start: 20230301
  3. OXBRYTA [Suspect]
     Active Substance: VOXELOTOR
     Dosage: 600 MG, DAILY
     Route: 048
     Dates: start: 20230418, end: 202305

REACTIONS (2)
  - Abdominal discomfort [Unknown]
  - Malaise [Unknown]

NARRATIVE: CASE EVENT DATE: 20230301
